FAERS Safety Report 9432543 (Version 1)
Quarter: 2013Q3

REPORT INFORMATION
  Report Type: Spontaneous
  Country: FR (occurrence: FR)
  Receive Date: 20130731
  Receipt Date: 20130731
  Transmission Date: 20140515
  Serious: Yes (Other)
  Sender: FDA-Public Use
  Company Number: PHHY2013FR075233

PATIENT
  Age: 42 Year
  Sex: Female
  Weight: 60 kg

DRUGS (4)
  1. GILENYA [Suspect]
     Indication: MULTIPLE SCLEROSIS
     Dosage: 1 DF, QD
     Route: 048
     Dates: start: 20130610, end: 20130712
  2. BACLOFEN [Concomitant]
     Indication: MUSCLE SPASTICITY
     Dosage: 1 DF, QD
     Route: 048
     Dates: start: 20071108
  3. ZOXAN//DOXAZOSIN MESILATE [Concomitant]
     Indication: URINARY TRACT DISORDER
     Dosage: 4 MG, QD
     Route: 048
     Dates: start: 20120604
  4. MODIODAL [Concomitant]
     Indication: FATIGUE
     Dosage: 3 DF, QD
     Route: 048
     Dates: start: 20060406

REACTIONS (1)
  - Urticaria [Recovered/Resolved]
